FAERS Safety Report 18335080 (Version 5)
Quarter: 2021Q1

REPORT INFORMATION
  Report Type: Spontaneous
  Country: US (occurrence: US)
  Receive Date: 20201001
  Receipt Date: 20210203
  Transmission Date: 20210419
  Serious: No
  Sender: FDA-Public Use
  Company Number: US-PFIZER INC-2020150687

PATIENT
  Age: 67 Year
  Sex: Female
  Weight: 126.1 kg

DRUGS (5)
  1. RETACRIT [Suspect]
     Active Substance: EPOETIN ALFA-EPBX
     Dosage: 10000 IU/ML
  2. RETACRIT [Suspect]
     Active Substance: EPOETIN ALFA-EPBX
     Indication: BREAST CANCER FEMALE
     Dosage: 30000 IU/ML, EVERY 14 DAYS
  3. RETACRIT [Suspect]
     Active Substance: EPOETIN ALFA-EPBX
     Indication: ANAEMIA
     Dosage: 30000 IU (30,000 UNITS, FREQUENCY: Q14DAYS)
  4. RETACRIT [Suspect]
     Active Substance: EPOETIN ALFA-EPBX
     Indication: CHRONIC KIDNEY DISEASE
     Dosage: 8000 UNITS Q (EVERY) 14 DAYS
  5. RETACRIT [Suspect]
     Active Substance: EPOETIN ALFA-EPBX
     Dosage: 30000 IU, WEEKLY; STRENGTH: 10,000 UNIT/ML SOLUTION
     Route: 058

REACTIONS (4)
  - Ear disorder [Unknown]
  - Jaw disorder [Unknown]
  - Eating disorder [Unknown]
  - Off label use [Unknown]
